FAERS Safety Report 6132876-4 (Version None)
Quarter: 2009Q1

REPORT INFORMATION
  Report Type: 
  Country: None (occurrence: None)
  Receive Date: 20090326
  Receipt Date: 20090223
  Transmission Date: 20090719
  Serious: No
  Sender: FDA-Public Use
  Company Number: US-BAYER-200911076NA

PATIENT
  Age: 27 Year
  Sex: Female
  Weight: 104 kg

DRUGS (2)
  1. MIRENA [Suspect]
     Indication: CONTRACEPTION
     Dosage: CONTINUOUS
     Route: 015
     Dates: start: 20080422
  2. MONISTAT [Concomitant]
     Indication: FUNGAL INFECTION
     Dosage: ONCE DAILY

REACTIONS (7)
  - ABDOMINAL PAIN LOWER [None]
  - ACNE [None]
  - COITAL BLEEDING [None]
  - COMPLICATION OF DEVICE REMOVAL [None]
  - LIBIDO DECREASED [None]
  - VULVOVAGINAL MYCOTIC INFECTION [None]
  - WEIGHT INCREASED [None]
